FAERS Safety Report 5285036-3 (Version None)
Quarter: 2007Q1

REPORT INFORMATION
  Report Type: 
  Country: None (occurrence: None)
  Receive Date: 20061229
  Receipt Date: 20061012
  Transmission Date: 20070707
  Serious: Yes (Other)
  Sender: FDA-Public Use
  Company Number: 2006UW17679

PATIENT
  Age: 43 Year
  Sex: Female
  Weight: 54.431 kg

DRUGS (4)
  1. CRESTOR [Suspect]
     Indication: BLOOD CHOLESTEROL INCREASED
     Dosage: 10 MG DAILY PO
     Route: 048
     Dates: start: 20060824, end: 20060908
  2. LISINOPRIL AND HYDROCHLOROTHIAZIDE [Concomitant]
  3. COMBIVENT [Concomitant]
  4. FLUCTICASONE PROPIONATE W/SALMETEROL XINAFOATE [Concomitant]

REACTIONS (3)
  - COUGH [None]
  - DYSPNOEA [None]
  - ILL-DEFINED DISORDER [None]
